FAERS Safety Report 18223857 (Version 1)
Quarter: 2020Q3

REPORT INFORMATION
  Report Type: Report from Study
  Country: US (occurrence: US)
  Receive Date: 20200902
  Receipt Date: 20200902
  Transmission Date: 20201103
  Serious: Yes (Other)
  Sender: FDA-Public Use
  Company Number: US-AGIOS-2008US02115

PATIENT

DRUGS (1)
  1. TIBSOVO [Suspect]
     Active Substance: IVOSIDENIB
     Indication: PRODUCT USED FOR UNKNOWN INDICATION
     Dosage: 250 MILLIGRAM, 2 TABLETS (500 MG) DAILY
     Route: 048

REACTIONS (3)
  - Fatigue [Unknown]
  - Metastases to central nervous system [Unknown]
  - Seizure [Unknown]

NARRATIVE: CASE EVENT DATE: 20200827
